FAERS Safety Report 15338357 (Version 3)
Quarter: 2018Q4

REPORT INFORMATION
  Report Type: Spontaneous
  Country: FR (occurrence: FR)
  Receive Date: 20180831
  Receipt Date: 20181203
  Transmission Date: 20190204
  Serious: Yes (Hospitalization)
  Sender: FDA-Public Use
  Company Number: FR-ROCHE-2177750

PATIENT
  Age: 80 Year
  Sex: Male

DRUGS (5)
  1. TRAMADOL. [Suspect]
     Active Substance: TRAMADOL
     Indication: POLYNEUROPATHY
     Route: 048
     Dates: start: 20091014, end: 20091030
  2. RIVOTRIL [Suspect]
     Active Substance: CLONAZEPAM
     Indication: POLYNEUROPATHY
     Dosage: UNIT DOSE: 3 [DRP]
     Route: 048
     Dates: start: 20091029, end: 20091030
  3. FUROSEMIDE. [Suspect]
     Active Substance: FUROSEMIDE
     Indication: HYPERTENSION
     Route: 048
     Dates: start: 20091029, end: 20091030
  4. LYRICA [Suspect]
     Active Substance: PREGABALIN
     Indication: POLYNEUROPATHY
     Route: 048
     Dates: start: 20091014
  5. EFFERALGAN [Suspect]
     Active Substance: ACETAMINOPHEN
     Indication: POLYNEUROPATHY
     Route: 048
     Dates: start: 20091029

REACTIONS (1)
  - Coma [Recovered/Resolved]

NARRATIVE: CASE EVENT DATE: 20091030
